FAERS Safety Report 4832596-X (Version None)
Quarter: 2005Q4

REPORT INFORMATION
  Report Type: 
  Country: None (occurrence: None)
  Receive Date: 20051121
  Receipt Date: 20051109
  Transmission Date: 20060501
  Serious: Yes (Other)
  Sender: FDA-Public Use
  Company Number: US-JNJFOC-20051102541

PATIENT
  Sex: Female
  Weight: 51.71 kg

DRUGS (9)
  1. REMICADE [Suspect]
     Route: 042
  2. REMICADE [Suspect]
     Route: 042
  3. REMICADE [Suspect]
     Indication: CROHN'S DISEASE
     Route: 042
  4. SULFASALAZINE [Concomitant]
     Route: 048
  5. AZATHIOPRINE [Concomitant]
  6. FOLIC ACID [Concomitant]
  7. AMBIEN [Concomitant]
     Indication: INSOMNIA
  8. PROZAC [Concomitant]
  9. PROMETHAZINE [Concomitant]
     Dosage: 25 MG, 1 IN 6 HOURS, AS NEEDED

REACTIONS (2)
  - JOINT SWELLING [None]
  - PAIN [None]
